FAERS Safety Report 9854226 (Version 2)
Quarter: 2014Q2

REPORT INFORMATION
  Report Type: Spontaneous
  Country: DZ (occurrence: DZ)
  Receive Date: 20140130
  Receipt Date: 20140620
  Transmission Date: 20141212
  Serious: Yes (Hospitalization, Other)
  Sender: FDA-Public Use
  Company Number: DZ-ROCHE-1341559

PATIENT
  Age: 54 Year
  Sex: Male
  Weight: 115 kg

DRUGS (7)
  1. PEGASYS [Suspect]
     Indication: HEPATITIS C
     Route: 058
     Dates: start: 20130613, end: 20130820
  2. PEGASYS [Suspect]
     Route: 065
     Dates: start: 20140203
  3. COPEGUS [Suspect]
     Indication: HEPATITIS C
     Route: 048
     Dates: start: 20130613, end: 20130820
  4. COPEGUS [Suspect]
     Route: 065
     Dates: start: 20140203
  5. METFORMIN HYDROCHLORIDE [Concomitant]
     Route: 065
  6. INSULIN [Concomitant]
  7. LEVOTHYROX [Concomitant]

REACTIONS (3)
  - Encephalopathy [Recovered/Resolved]
  - Bronchitis [Unknown]
  - Amnesia [Recovered/Resolved]
